FAERS Safety Report 4555609-1 (Version None)
Quarter: 2005Q1

REPORT INFORMATION
  Report Type: 
  Country: None (occurrence: None)
  Receive Date: 20050118
  Receipt Date: 20050104
  Transmission Date: 20050727
  Serious: Yes (Disabling)
  Sender: FDA-Public Use
  Company Number: 2004UW04341

PATIENT
  Age: 44 Year
  Sex: Male
  Weight: 265 kg

DRUGS (6)
  1. CRESTOR [Suspect]
     Indication: HYPERCHOLESTEROLAEMIA
     Dosage: 10 MG QD PO
     Route: 048
     Dates: start: 20040204, end: 20040307
  2. LORTAB [Concomitant]
  3. XANAX [Concomitant]
  4. DILANTIN [Concomitant]
  5. PROZAC [Concomitant]
  6. ASPIRIN [Concomitant]

REACTIONS (12)
  - ASTHENIA [None]
  - BALANCE DISORDER [None]
  - COORDINATION ABNORMAL [None]
  - DELUSIONAL PERCEPTION [None]
  - DISTURBANCE IN ATTENTION [None]
  - DIZZINESS [None]
  - DYSKINESIA [None]
  - EYE HAEMORRHAGE [None]
  - MYOSITIS [None]
  - RHABDOMYOLYSIS [None]
  - SINUSITIS [None]
  - TREMOR [None]
